FAERS Safety Report 7970066-0 (Version None)
Quarter: 2011Q4

REPORT INFORMATION
  Report Type: 
  Country: None (occurrence: None)
  Receive Date: 20111212
  Receipt Date: 20111208
  Transmission Date: 20120403
  Serious: Yes (Life-Threatening, Hospitalization)
  Sender: FDA-Public Use
  Company Number: NL-JNJFOC-20111204221

PATIENT
  Sex: Male
  Weight: 100 kg

DRUGS (1)
  1. HALDOL [Suspect]
     Indication: RESTLESSNESS
     Dosage: 5MG/ML AMPULE 1 ML 1 DOSE
     Route: 065
     Dates: start: 20110818, end: 20110827

REACTIONS (3)
  - HALLUCINATION [None]
  - RESTLESSNESS [None]
  - SOMNOLENCE [None]
